FAERS Safety Report 8765624 (Version 1)
Quarter: 2012Q4

REPORT INFORMATION
  Report Type: 
  Country: BR (occurrence: BR)
  Receive Date: 20120903
  Receipt Date: 20120903
  Transmission Date: 20130627
  Serious: Yes (Other)
  Sender: FDA-Public Use
  Company Number: PHHY2012BR075537

PATIENT
  Sex: Male

DRUGS (1)
  1. DIOVAN AMLO [Suspect]
     Indication: BLOOD PRESSURE ABNORMAL
     Dosage: 1 DF (80 mg vals and 5 mg amlo), daily
     Route: 048
     Dates: start: 2007

REACTIONS (3)
  - Pulmonary tuberculoma [Recovered/Resolved]
  - Pulmonary mass [Recovered/Resolved]
  - Total lung capacity decreased [Recovered/Resolved]
